FAERS Safety Report 7211288-6 (Version None)
Quarter: 2011Q1

REPORT INFORMATION
  Report Type: 
  Country: None (occurrence: None)
  Receive Date: 20110105
  Receipt Date: 20101227
  Transmission Date: 20110831
  Serious: Yes (Other)
  Sender: FDA-Public Use
  Company Number: US-ABBOTT-10P-163-0694175-00

PATIENT
  Sex: Female
  Weight: 70.824 kg

DRUGS (4)
  1. VICODIN [Concomitant]
     Indication: PRODUCT USED FOR UNKNOWN INDICATION
     Dosage: 5/500
  2. HUMIRA [Suspect]
     Indication: PSORIATIC ARTHROPATHY
     Dates: start: 20061201
  3. AMBIEN [Concomitant]
     Indication: INSOMNIA
  4. SERTRALINE [Concomitant]
     Indication: DEPRESSION

REACTIONS (7)
  - MELANOCYTIC NAEVUS [None]
  - SKIN CANCER [None]
  - BACK PAIN [None]
  - ARTHRALGIA [None]
  - CANDIDIASIS [None]
  - RASH [None]
  - WEIGHT DECREASED [None]
